FAERS Safety Report 8353320-2 (Version None)
Quarter: 2012Q2

REPORT INFORMATION
  Report Type: 
  Country: None (occurrence: None)
  Receive Date: 20120511
  Receipt Date: 20120509
  Transmission Date: 20120825
  Serious: Yes (Disabling)
  Sender: FDA-Public Use
  Company Number: PHHY2012CY039710

PATIENT
  Sex: Male
  Weight: 175 kg

DRUGS (1)
  1. NEORAL [Suspect]
     Indication: NEURODERMATITIS
     Dosage: 3.5 MG/KG, QD
     Route: 048
     Dates: start: 20120302

REACTIONS (2)
  - EJACULATION DELAYED [None]
  - ERECTILE DYSFUNCTION [None]
